FAERS Safety Report 20351921 (Version 1)
Quarter: 2022Q1

REPORT INFORMATION
  Report Type: Spontaneous
  Country: US (occurrence: None)
  Receive Date: 20220118
  Receipt Date: 20220118
  Transmission Date: 20220423
  Serious: Yes (Death)
  Sender: FDA-Public Use
  Company Number: None

PATIENT
  Age: 17 Year
  Sex: Male

DRUGS (5)
  1. EPIDIOLEX [Suspect]
     Active Substance: CANNABIDIOL
     Indication: Epilepsy
     Dosage: FREQUENCY : TWICE A DAY;?
     Route: 048
     Dates: start: 20210429, end: 20220104
  2. KEPPRA [Suspect]
     Active Substance: LEVETIRACETAM
     Indication: Epilepsy
     Dosage: FREQUENCY : TWICE A DAY;?
     Route: 048
     Dates: start: 20210429, end: 20220104
  3. NANOVM [Concomitant]
     Dates: start: 20210429, end: 20220104
  4. KEPPRA [Concomitant]
     Active Substance: LEVETIRACETAM
     Dates: start: 20210429, end: 20220104
  5. POLYCITRA [Concomitant]
     Dates: start: 20210429, end: 20220104

REACTIONS (1)
  - Cardiac arrest [None]

NARRATIVE: CASE EVENT DATE: 20220104
